FAERS Safety Report 9225236 (Version 1)
Quarter: 2013Q2

REPORT INFORMATION
  Report Type: Spontaneous
  Country: BR (occurrence: BR)
  Receive Date: 20130411
  Receipt Date: 20130411
  Transmission Date: 20140414
  Serious: Yes (Other)
  Sender: FDA-Public Use
  Company Number: PHHY2013BR033627

PATIENT
  Sex: Female
  Weight: 65 kg

DRUGS (2)
  1. RITALINA [Suspect]
     Indication: DEPRESSION
     Dosage: 1 DF, QD
     Route: 048
  2. RITALINA [Suspect]
     Indication: OFF LABEL USE

REACTIONS (3)
  - Frustration [Recovered/Resolved]
  - Anxiety [Recovered/Resolved]
  - Depression [Recovered/Resolved]
